FAERS Safety Report 9265101 (Version 1)
Quarter: 2013Q2

REPORT INFORMATION
  Report Type: Spontaneous
  Country: DE (occurrence: None)
  Receive Date: 20130429
  Receipt Date: 20130429
  Transmission Date: 20140414
  Serious: Yes (Hospitalization, Other)
  Sender: FDA-Public Use
  Company Number: GER/GER/13/0029200

PATIENT
  Age: 43 Year
  Sex: Female

DRUGS (8)
  1. VENLAFAXINE (VENLAFAXINE) [Suspect]
     Indication: PRODUCT USED FOR UNKNOWN INDICATION
     Route: 048
     Dates: start: 20121220, end: 20121222
  2. MIRTAZAPINE (MIRTAZAPINE) [Suspect]
     Indication: PRODUCT USED FOR UNKNOWN INDICATION
  3. AMISULPRID [Suspect]
     Indication: PRODUCT USED FOR UNKNOWN INDICATION
     Route: 048
     Dates: start: 2007
  4. OXCARBAZEPINE (OXCARBAZEPINE) TABLET, 300MG [Suspect]
     Indication: PRODUCT USED FOR UNKNOWN INDICATION
     Route: 048
     Dates: start: 200012, end: 20130109
  5. FRISIUM [Concomitant]
  6. LAMOTRIGINE (LAMOTRIGINE) [Concomitant]
  7. LORAZEPAM (LORAZEPAM) [Concomitant]
  8. VIMPAT (LACOSAMIDE) [Concomitant]

REACTIONS (4)
  - Hyponatraemia [None]
  - Fatigue [None]
  - Somnolence [None]
  - Refusal of treatment by patient [None]
